FAERS Safety Report 19700288 (Version 4)
Quarter: 2021Q3

REPORT INFORMATION
  Report Type: Spontaneous
  Country: PL (occurrence: PL)
  Receive Date: 20210813
  Receipt Date: 20210915
  Transmission Date: 20211014
  Serious: Yes (Other)
  Sender: FDA-Public Use
  Company Number: PL-MYLANLABS-2021M1049718

PATIENT
  Age: 58 Year
  Sex: Male

DRUGS (19)
  1. DOCETAXEL. [Suspect]
     Active Substance: DOCETAXEL
     Indication: LUNG ADENOCARCINOMA
  2. CISPLATIN. [Suspect]
     Active Substance: CISPLATIN
     Indication: METASTASES TO BONE
  3. PEMETREXED. [Suspect]
     Active Substance: PEMETREXED
     Indication: METASTASES TO BONE
     Dosage: UNK
     Dates: start: 201612, end: 201704
  4. GEMCITABINE. [Suspect]
     Active Substance: GEMCITABINE
     Indication: LUNG CARCINOMA CELL TYPE UNSPECIFIED STAGE IV
     Dosage: 1000 MILLIGRAM/SQ. METER (1000 MILLIGRAM/SQ. METER, 3 DOSES)
     Route: 065
     Dates: start: 202002, end: 202003
  5. NINTEDANIB [Suspect]
     Active Substance: NINTEDANIB
     Indication: LUNG ADENOCARCINOMA STAGE IV
  6. PEMETREXED. [Suspect]
     Active Substance: PEMETREXED
     Indication: LUNG CARCINOMA CELL TYPE UNSPECIFIED STAGE IV
  7. NINTEDANIB [Suspect]
     Active Substance: NINTEDANIB
     Indication: CHEMOTHERAPY
  8. PEMETREXED. [Suspect]
     Active Substance: PEMETREXED
     Indication: CHEMOTHERAPY
     Dosage: UNK UNK, CYCLE (6 CYCLES)
     Route: 065
     Dates: start: 201612, end: 201704
  9. DOCETAXEL. [Suspect]
     Active Substance: DOCETAXEL
     Indication: LUNG ADENOCARCINOMA STAGE IV
  10. NINTEDANIB [Suspect]
     Active Substance: NINTEDANIB
     Indication: LUNG CARCINOMA CELL TYPE UNSPECIFIED STAGE IV
     Dosage: 15 CYCLES
     Route: 065
     Dates: start: 201812, end: 202001
  11. CISPLATIN. [Suspect]
     Active Substance: CISPLATIN
     Indication: CHEMOTHERAPY
     Dosage: 6 CYCLES
     Route: 065
     Dates: start: 201612, end: 201704
  12. DOCETAXEL. [Suspect]
     Active Substance: DOCETAXEL
     Indication: METASTASES TO BONE
  13. NINTEDANIB [Suspect]
     Active Substance: NINTEDANIB
     Indication: LUNG ADENOCARCINOMA
  14. NINTEDANIB [Suspect]
     Active Substance: NINTEDANIB
     Indication: METASTASES TO BONE
  15. CISPLATIN. [Suspect]
     Active Substance: CISPLATIN
     Indication: LUNG ADENOCARCINOMA
  16. CISPLATIN. [Suspect]
     Active Substance: CISPLATIN
     Indication: LUNG CARCINOMA CELL TYPE UNSPECIFIED STAGE IV
  17. PEMETREXED. [Suspect]
     Active Substance: PEMETREXED
     Indication: LUNG ADENOCARCINOMA
  18. DOCETAXEL. [Suspect]
     Active Substance: DOCETAXEL
     Indication: LUNG CARCINOMA CELL TYPE UNSPECIFIED STAGE IV
     Dosage: 15 CYCLES
     Route: 065
     Dates: start: 201812, end: 202001
  19. DOCETAXEL. [Suspect]
     Active Substance: DOCETAXEL
     Indication: CHEMOTHERAPY

REACTIONS (14)
  - Abdominal pain [Unknown]
  - Neutropenia [Unknown]
  - Blood creatinine increased [Unknown]
  - Transaminases increased [Unknown]
  - Blood pressure increased [Recovered/Resolved]
  - Thrombocytopenia [Unknown]
  - Decreased appetite [Unknown]
  - Malaise [Unknown]
  - Upper respiratory tract infection [Unknown]
  - Disease progression [Unknown]
  - Nausea [Unknown]
  - Nephropathy toxic [Unknown]
  - Asthenia [Unknown]
  - Pulmonary embolism [Unknown]
